FAERS Safety Report 4414030-7 (Version None)
Quarter: 2004Q3

REPORT INFORMATION
  Report Type: 
  Country: None (occurrence: None)
  Receive Date: 20040803
  Receipt Date: 20040524
  Transmission Date: 20050211
  Serious: Yes (Life-Threatening, Hospitalization, Disabling, Other)
  Sender: FDA-Public Use
  Company Number: US-GLAXOSMITHKLINE-A0520112A

PATIENT
  Age: 40 Year
  Sex: Female

DRUGS (2)
  1. WELLBUTRIN [Suspect]
     Indication: ILL-DEFINED DISORDER
     Dosage: 300MG PER DAY
     Route: 048
     Dates: start: 20040401
  2. NO CONCURRENT MEDICATION [Concomitant]

REACTIONS (2)
  - CONVULSION [None]
  - JOINT DISLOCATION [None]
